FAERS Safety Report 4524470-3 (Version None)
Quarter: 2004Q4

REPORT INFORMATION
  Report Type: 
  Country: None (occurrence: None)
  Receive Date: 20041117
  Receipt Date: 20031006
  Transmission Date: 20050328
  Serious: Yes (Other)
  Sender: FDA-Public Use
  Company Number: US-JNJFOC-20031001469

PATIENT
  Age: 80 Year
  Sex: Male
  Weight: 86.1834 kg

DRUGS (8)
  1. LEVAQUIN [Suspect]
     Indication: RESPIRATORY TRACT INFECTION
     Dosage: 500 MG, ORAL
     Route: 048
     Dates: start: 20030709, end: 20030719
  2. PREDNISONE [Concomitant]
  3. CIMETIDINE [Concomitant]
  4. NILANDRON [Concomitant]
  5. ZOLOFT [Concomitant]
  6. ATROPINE [Concomitant]
  7. DIPHENOXYLATE (DIPHENOXYLATE) [Concomitant]
  8. METRONIDAZOLE [Concomitant]

REACTIONS (2)
  - BENIGN COLONIC POLYP [None]
  - DIARRHOEA [None]
